FAERS Safety Report 5968258-5 (Version None)
Quarter: 2008Q4

REPORT INFORMATION
  Report Type: 
  Country: None (occurrence: None)
  Receive Date: 20081126
  Receipt Date: 20081119
  Transmission Date: 20090506
  Serious: Yes (Hospitalization, Other)
  Sender: FDA-Public Use
  Company Number: US-ABBOTT-08P-163-0489162-00

PATIENT
  Age: 35 Year
  Sex: Female

DRUGS (5)
  1. VICODIN ES [Suspect]
     Indication: BURSITIS
     Dates: end: 20081019
  2. ESZOPICLONE [Suspect]
     Indication: INSOMNIA
     Route: 048
     Dates: start: 20070101, end: 20081019
  3. MELOXICAM [Suspect]
     Indication: BURSITIS
     Dates: end: 20081019
  4. METAXALONE [Suspect]
     Indication: BURSITIS
     Dates: end: 20081019
  5. IBUPROFEN TABLETS [Concomitant]
     Indication: DRUG USE FOR UNKNOWN INDICATION

REACTIONS (3)
  - CARBON MONOXIDE POISONING [None]
  - LOSS OF CONSCIOUSNESS [None]
  - PARASOMNIA [None]
